FAERS Safety Report 9185353 (Version 1)
Quarter: 2012Q4

REPORT INFORMATION
  Report Type: 
  Country: CN (occurrence: CN)
  Receive Date: 20121031
  Receipt Date: 20121031
  Transmission Date: 20130627
  Serious: Yes (Other)
  Sender: FDA-Public Use
  Company Number: CN-ELI_LILLY_AND_COMPANY-CN201210008472

PATIENT
  Age: 57 None
  Sex: Female
  Weight: 56 kg

DRUGS (6)
  1. ZYPREXA [Suspect]
     Indication: DEPRESSION
     Dosage: 5 mg, qd
     Route: 048
     Dates: start: 20090427, end: 20090603
  2. VENLAFAXINE [Concomitant]
     Dosage: UNK
     Dates: start: 20090423
  3. VENLAFAXINE [Concomitant]
     Dosage: 150 mg, qd
     Route: 048
     Dates: start: 20090427
  4. VENLAFAXINE [Concomitant]
     Dosage: 220 mg, qd
     Route: 048
     Dates: start: 20090512
  5. ALPRAZOLAM [Concomitant]
     Dosage: UNK
     Dates: start: 20090423
  6. OXIRACETAM [Concomitant]
     Dosage: UNK
     Dates: start: 20090427

REACTIONS (3)
  - Neutropenia [Unknown]
  - White blood cell count decreased [Unknown]
  - Off label use [Unknown]
